FAERS Safety Report 8186002-0 (Version None)
Quarter: 2012Q1

REPORT INFORMATION
  Report Type: 
  Country: None (occurrence: None)
  Receive Date: 20120306
  Receipt Date: 20120222
  Transmission Date: 20120608
  Serious: Yes (Death, Hospitalization)
  Sender: FDA-Public Use
  Company Number: BR-AMGEN-BRASP2012012524

PATIENT
  Age: 69 Year
  Sex: Male
  Weight: 70 kg

DRUGS (7)
  1. ARAVA [Concomitant]
     Dosage: UNK
  2. LEVOTHYROXINE SODIUM [Concomitant]
     Indication: THYROID DISORDER
     Dosage: UNK UNK, UNK
  3. PREDNISONE TAB [Concomitant]
     Indication: PAIN
     Dosage: UNK UNK, UNK
  4. OMEPRAZOLE [Concomitant]
     Dosage: UNK
  5. ENBREL [Suspect]
     Indication: RHEUMATOID ARTHRITIS
     Dosage: 50 MG, ONCE WEEKLY
     Route: 058
     Dates: start: 20120101, end: 20120211
  6. IMOVANE [Concomitant]
     Dosage: UNK UNK, UNK
  7. ALENIA [Concomitant]
     Dosage: UNK

REACTIONS (4)
  - PULMONARY FIBROSIS [None]
  - WALKING DISABILITY [None]
  - PNEUMONIA [None]
  - BALANCE DISORDER [None]
